FAERS Safety Report 9457358 (Version 4)
Quarter: 2013Q4

REPORT INFORMATION
  Report Type: Spontaneous
  Country: JP (occurrence: JP)
  Receive Date: 20130814
  Receipt Date: 20131209
  Transmission Date: 20140711
  Serious: Yes (Hospitalization, Other)
  Sender: FDA-Public Use
  Company Number: PHHY2013JP086906

PATIENT
  Age: 70 Year
  Sex: Male
  Weight: 63 kg

DRUGS (14)
  1. EXFORGE [Suspect]
     Indication: HYPERTENSION
     Dosage: 1 DF, DAILY
     Route: 048
     Dates: start: 20120705
  2. IRBETAN [Suspect]
     Indication: HYPERTENSION
     Dosage: 100 MG, DAILY
     Route: 048
     Dates: start: 20130117, end: 20130605
  3. EQUA [Concomitant]
     Dosage: UNK UKN, UNK
     Route: 048
  4. DIOVAN [Concomitant]
     Indication: HYPERTENSION
     Dosage: 80 MG, UNK
     Route: 048
     Dates: start: 20120705, end: 20130116
  5. BAYASPIRIN [Concomitant]
     Indication: ANGINA PECTORIS
     Dosage: 100 MG, UNK
     Route: 048
     Dates: start: 20080410
  6. TENORMIN [Concomitant]
     Indication: ANGINA PECTORIS
     Dosage: 25 MG, UNK
     Route: 048
     Dates: start: 20120315
  7. LUPRAC [Concomitant]
     Indication: CARDIAC FAILURE
     Dosage: 4 MG, UNK
     Route: 048
     Dates: start: 20120510
  8. PANALDINE [Concomitant]
     Indication: ANGINA PECTORIS
     Dosage: 200 MG, UNK
     Route: 048
     Dates: start: 20080422
  9. ITOROL [Concomitant]
     Indication: ANGINA PECTORIS
     Dosage: 40 MG, UNK
     Route: 048
     Dates: start: 20080410
  10. NICORANDIL [Concomitant]
     Indication: ANGINA PECTORIS
     Dosage: 15 MG, UNK
     Route: 048
     Dates: start: 20080410
  11. NEXIUM//ESOMEPRAZOLE MAGNESIUM [Concomitant]
     Indication: GASTROOESOPHAGEAL REFLUX DISEASE
     Dosage: 20 MG, UNK
     Route: 048
     Dates: start: 20121206
  12. CRESTOR [Concomitant]
     Indication: DYSLIPIDAEMIA
     Dosage: 5 MG, UNK
     Route: 048
     Dates: start: 20110707
  13. CARDENALIN [Concomitant]
     Indication: HYPERTENSION
     Dosage: 2 MG, UNK
     Route: 048
     Dates: start: 20130607
  14. SUREPOST [Concomitant]
     Dosage: UNK UKN, UNK
     Route: 048

REACTIONS (5)
  - Acquired epidermolysis bullosa [Recovering/Resolving]
  - Penile swelling [Unknown]
  - Rash [Recovering/Resolving]
  - Blood glucose increased [Unknown]
  - Blood pressure inadequately controlled [Unknown]
